FAERS Safety Report 23409149 (Version 1)
Quarter: 2024Q1

REPORT INFORMATION
  Report Type: Report from Study
  Country: GB (occurrence: GB)
  Receive Date: 20240117
  Receipt Date: 20240117
  Transmission Date: 20240410
  Serious: Yes (Other)
  Sender: FDA-Public Use
  Company Number: GB-AMGEN-GBRSL2023195942

PATIENT
  Age: 37 Year
  Sex: Male

DRUGS (2)
  1. ADALIMUMAB [Suspect]
     Active Substance: ADALIMUMAB\ISOPROPYL ALCOHOL
     Indication: Spinal osteoarthritis
     Dosage: 40 MILLIGRAM, Q2WK
     Route: 065
     Dates: start: 20231031
  2. ADALIMUMAB [Suspect]
     Active Substance: ADALIMUMAB\ISOPROPYL ALCOHOL
     Indication: Spondylitis

REACTIONS (3)
  - Colitis ulcerative [Unknown]
  - Dizziness [Recovered/Resolved]
  - Drug ineffective [Unknown]
